FAERS Safety Report 15061215 (Version 1)
Quarter: 2018Q2

REPORT INFORMATION
  Report Type: Spontaneous
  Country: US (occurrence: US)
  Receive Date: 20180625
  Receipt Date: 20180625
  Transmission Date: 20180711
  Serious: Yes (Hospitalization, Other)
  Sender: FDA-Public Use
  Company Number: US-IPCA LABORATORIES LIMITED-IPC-2018-US-001305

PATIENT

DRUGS (1)
  1. HYDROXYCHLOROQUINE SULFATE 200MG TABLETS, USP [Suspect]
     Active Substance: HYDROXYCHLOROQUINE SULFATE
     Indication: COSTOCHONDRITIS
     Dosage: HALF OF 200 MG, UNK
     Route: 065
     Dates: start: 20171118

REACTIONS (3)
  - Cardiac failure [Unknown]
  - Medication error [Unknown]
  - Treatment noncompliance [Unknown]
